FAERS Safety Report 7111789-5 (Version None)
Quarter: 2010Q4

REPORT INFORMATION
  Report Type: 
  Country: None (occurrence: None)
  Receive Date: 20101119
  Receipt Date: 20101012
  Transmission Date: 20110411
  Serious: Yes (Hospitalization)
  Sender: FDA-Public Use
  Company Number: SE-AMGEN-US368215

PATIENT

DRUGS (11)
  1. ENBREL [Suspect]
     Indication: PSORIASIS
     Dosage: 50 MG, 2 TIMES/WK
     Dates: start: 20090817, end: 20090831
  2. MAGNESIUM HYDROXIDE [Concomitant]
     Dosage: 1 UNK, QD
  3. URSO FALK [Concomitant]
     Indication: BILIARY CIRRHOSIS PRIMARY
     Dosage: UNK UNK, UNK
     Route: 048
  4. URSO FALK [Concomitant]
     Dosage: TWO TABLETS IN THE MORNING AND ONE IN THE EVENING
     Route: 048
  5. PANCREATIN [Concomitant]
     Dosage: 2 UNK, TID
     Route: 048
  6. METHOTREXATE [Concomitant]
     Dosage: UNK UNK, UNK
     Route: 048
     Dates: start: 20070809, end: 20090901
  7. METHOTREXATE [Concomitant]
     Dosage: DOSE 15 MG WEEKLY
     Route: 048
     Dates: start: 20070809, end: 20090901
  8. FOLACIN [Concomitant]
     Dosage: UNK UNK, UNK
     Route: 048
     Dates: start: 20070809, end: 20090901
  9. FOLACIN [Concomitant]
     Dosage: DOSE 5 MG DAILY EXCEPT FOR THE DAY WHEN SHE TAKES MTX
     Route: 048
     Dates: start: 20070809, end: 20090901
  10. EMGESAN [Concomitant]
     Indication: BILIARY CIRRHOSIS PRIMARY
  11. CREON [Concomitant]
     Indication: BILIARY CIRRHOSIS PRIMARY
     Route: 048

REACTIONS (1)
  - PANCREATITIS [None]
